FAERS Safety Report 16523400 (Version 1)
Quarter: 2019Q3

REPORT INFORMATION
  Report Type: Other
  Country: DE (occurrence: DE)
  Receive Date: 20190703
  Receipt Date: 20190703
  Transmission Date: 20191004
  Serious: No
  Sender: FDA-Public Use
  Company Number: DE-LUPIN PHARMACEUTICALS INC.-2018-08619

PATIENT
  Age: 20 Year
  Sex: Male
  Weight: 85 kg

DRUGS (8)
  1. SIMVASTATIN. [Suspect]
     Active Substance: SIMVASTATIN
     Indication: TYPE IIA HYPERLIPIDAEMIA
     Dosage: 40 MG, UNK
     Route: 048
     Dates: start: 20160509, end: 20160713
  2. CRESTOR [Suspect]
     Active Substance: ROSUVASTATIN CALCIUM
     Indication: TYPE IIA HYPERLIPIDAEMIA
     Dosage: 1 DF, QD (EVERY 1 DAY 1 TABLET)
     Route: 048
     Dates: start: 20170414, end: 20170421
  3. INEGY [Suspect]
     Active Substance: EZETIMIBE\SIMVASTATIN
     Indication: TYPE IIA HYPERLIPIDAEMIA
     Dosage: 1 DF, QD (EVERY 1 DAY 1 TABLET)
     Route: 048
     Dates: start: 20180723, end: 20180731
  4. ATORVASTATIN [Suspect]
     Active Substance: ATORVASTATIN
     Indication: TYPE IIA HYPERLIPIDAEMIA
     Dosage: 5 MG, QD (HALF TABLET DAILY)
     Route: 048
     Dates: start: 20161103, end: 20161125
  5. FLUVASTATIN [Suspect]
     Active Substance: FLUVASTATIN SODIUM
     Indication: TYPE IIA HYPERLIPIDAEMIA
     Dosage: 1 DF, QOD (EVERY OTHER DAY 1 TABLET)
     Route: 048
     Dates: start: 20180903, end: 20180909
  6. PRAVASTATIN SODIUM TABLETS [Suspect]
     Active Substance: PRAVASTATIN SODIUM
     Indication: TYPE IIA HYPERLIPIDAEMIA
     Dosage: 1 DF, QD (EVERY OTHER DAY 1 TABLET)
     Route: 048
     Dates: start: 20180820, end: 20180829
  7. LOVASTATIN. [Suspect]
     Active Substance: LOVASTATIN
     Indication: TYPE IIA HYPERLIPIDAEMIA
     Dosage: 10 MG, UNK
     Route: 048
     Dates: start: 20170912, end: 20170919
  8. HUMALOG [Concomitant]
     Active Substance: INSULIN LISPRO
     Indication: TYPE 1 DIABETES MELLITUS
     Dosage: 1.5 INTERNATIONAL UNIT
     Route: 058
     Dates: start: 2011

REACTIONS (4)
  - Blood creatine phosphokinase increased [Recovered/Resolved]
  - Hyperhidrosis [Unknown]
  - Myopathy [Recovered/Resolved]
  - Dizziness [Unknown]
